FAERS Safety Report 7692164-1 (Version None)
Quarter: 2011Q3

REPORT INFORMATION
  Report Type: 
  Country: None (occurrence: None)
  Receive Date: 20110818
  Receipt Date: 20110804
  Transmission Date: 20111222
  Serious: Yes (Hospitalization, Other)
  Sender: FDA-Public Use
  Company Number: PHHY2011BR70820

PATIENT
  Sex: Female

DRUGS (4)
  1. EXFORGE [Suspect]
     Dosage: UNK UKN, UNK
  2. FORADIL [Suspect]
     Indication: ASTHMATIC CRISIS
     Dosage: 1 INHALATION EVERY 6 HOURS
  3. GALVUS MET COMBIPACK [Suspect]
     Dosage: UNK UKN, UNK
  4. PAMELOR [Suspect]
     Dosage: UNK UKN, UNK

REACTIONS (6)
  - ASTHMATIC CRISIS [None]
  - DEPRESSION [None]
  - DIABETES MELLITUS [None]
  - INFLUENZA [None]
  - ASTHMA [None]
  - DYSPNOEA [None]
